FAERS Safety Report 4827815-X (Version None)
Quarter: 2005Q4

REPORT INFORMATION
  Report Type: 
  Country: None (occurrence: None)
  Receive Date: 20051110
  Receipt Date: 20040114
  Transmission Date: 20060501
  Serious: Yes (Hospitalization)
  Sender: FDA-Public Use
  Company Number: 05USA0224

PATIENT
  Age: 60 Year
  Sex: Female
  Weight: 70.7611 kg

DRUGS (12)
  1. GLIADEL [Suspect]
     Indication: GLIOBLASTOMA MULTIFORME
     Dosage: 7.7MG/WAFER; 8 WAFERS
     Dates: start: 20030819
  2. TEMODAR [Suspect]
     Indication: GLIOBLASTOMA MULTIFORME
     Dosage: 75 MG/M*2 QD
     Dates: start: 20030903, end: 20031101
  3. KEPPRA [Concomitant]
  4. DEXAMETHASONE [Concomitant]
  5. LEXAPRO (ANTIDEPRESSANTS) [Concomitant]
  6. LANSOPRAZOLE [Concomitant]
  7. VITAMIN A [Concomitant]
  8. PEPCID [Concomitant]
  9. MORPHINE [Concomitant]
  10. CIPRO [Concomitant]
  11. METRONIDAZOLE [Concomitant]
  12. ACETAMINOPHEN [Concomitant]

REACTIONS (3)
  - DIVERTICULITIS [None]
  - PELVIC ABSCESS [None]
  - RESPIRATORY FAILURE [None]
